FAERS Safety Report 14700101 (Version 1)
Quarter: 2018Q1

REPORT INFORMATION
  Report Type: Spontaneous
  Country: FR (occurrence: FR)
  Receive Date: 20180330
  Receipt Date: 20180330
  Transmission Date: 20180509
  Serious: Yes (Hospitalization)
  Sender: FDA-Public Use
  Company Number: US-ASTRAZENECA-2018SE40083

PATIENT
  Age: 53 Day
  Sex: Female

DRUGS (1)
  1. SYNAGIS [Suspect]
     Active Substance: PALIVIZUMAB
     Indication: ANTIVIRAL PROPHYLAXIS
     Route: 030
     Dates: start: 20180130

REACTIONS (2)
  - Bradycardia neonatal [Recovering/Resolving]
  - Infantile apnoea [Recovering/Resolving]

NARRATIVE: CASE EVENT DATE: 20180202
